FAERS Safety Report 4452668-1 (Version None)
Quarter: 2004Q3

REPORT INFORMATION
  Report Type: 
  Country: None (occurrence: None)
  Receive Date: 20040813
  Receipt Date: 20040625
  Transmission Date: 20050211
  Serious: No
  Sender: FDA-Public Use
  Company Number: S04-USA-03845-01

PATIENT
  Age: 69 Year
  Sex: Male

DRUGS (15)
  1. NAMENDA [Suspect]
     Indication: DEMENTIA ALZHEIMER'S TYPE
     Dosage: 10 MG QAM PO
     Route: 048
     Dates: start: 20040501, end: 20040501
  2. NAMENDA [Suspect]
     Indication: DEMENTIA ALZHEIMER'S TYPE
     Dosage: 5 MG QHS PO
     Route: 048
     Dates: start: 20040501, end: 20040501
  3. NAMENDA [Suspect]
     Indication: DEMENTIA ALZHEIMER'S TYPE
     Dosage: 10 MG BID PO
     Route: 048
     Dates: start: 20040501
  4. NAMENDA [Suspect]
     Indication: DEMENTIA ALZHEIMER'S TYPE
     Dosage: 5 MG QD PO
     Route: 048
     Dates: start: 20040501, end: 20040501
  5. NAMENDA [Suspect]
     Indication: DEMENTIA ALZHEIMER'S TYPE
     Dosage: 5 MG BID PO
     Route: 048
     Dates: start: 20040501, end: 20040501
  6. HYDROCHLOROTHIAZIDE [Concomitant]
  7. FELODIPINE [Concomitant]
  8. BLOOD THINNER (NOS) [Concomitant]
  9. FINASTERIDE [Concomitant]
  10. LEVOTHYROXINE SODIUM [Concomitant]
  11. SERTRALINE HCL [Concomitant]
  12. SIMVASTATIN [Concomitant]
  13. DONEPEZIL HCL [Concomitant]
  14. ASPIRIN [Concomitant]
  15. VITAMIN E [Concomitant]

REACTIONS (1)
  - DIZZINESS [None]
